FAERS Safety Report 17515731 (Version 2)
Quarter: 2020Q4

REPORT INFORMATION
  Report Type: Spontaneous
  Country: GB (occurrence: GB)
  Receive Date: 20200309
  Receipt Date: 20201001
  Transmission Date: 20210113
  Serious: Yes (Other)
  Sender: FDA-Public Use
  Company Number: GB-TORRENT-00023035

PATIENT
  Age: 72 Year
  Sex: Female
  Weight: 52 kg

DRUGS (4)
  1. PHENYTOIN SODIUM. [Concomitant]
     Active Substance: PHENYTOIN SODIUM
     Indication: EPILEPSY
     Dosage: AT NIGHT
  2. THEICAL-D3 [Concomitant]
     Indication: OSTEOPENIA
     Route: 048
  3. LEVETIRACETAM. [Suspect]
     Active Substance: LEVETIRACETAM
     Indication: EPILEPSY
     Dosage: 500MG AM AND 1G PM
     Route: 048
     Dates: start: 20191120, end: 20200207
  4. DERMOL [Concomitant]
     Active Substance: BENZALKONIUM CHLORIDE\CHLORHEXIDINE HYDROCHLORIDE\ISOPROPYL MYRISTATE\PARAFFIN
     Indication: PRODUCT USED FOR UNKNOWN INDICATION
     Dosage: SHOWER EMOLLIENT
     Route: 061

REACTIONS (2)
  - Product substitution issue [Unknown]
  - Seizure [Recovered/Resolved]
